FAERS Safety Report 8494292-X (Version None)
Quarter: 2012Q2

REPORT INFORMATION
  Report Type: 
  Country: None (occurrence: None)
  Receive Date: 20120628
  Receipt Date: 20120620
  Transmission Date: 20120825
  Serious: Yes (Hospitalization)
  Sender: FDA-Public Use
  Company Number: 2012SP033794

PATIENT
  Age: 24 Year
  Sex: Female
  Weight: 60 kg

DRUGS (7)
  1. ALPRAZOLAM [Concomitant]
  2. ACETAMINOPHEN [Concomitant]
  3. PROPRANOLOL [Concomitant]
  4. ZOLPIDEM [Concomitant]
  5. ASENAPINE (ASENAPINE /05706901/) [Suspect]
     Indication: SCHIZOPHRENIA
     Dosage: ;BID;SL, 10 MG;BID;SL
     Route: 060
     Dates: start: 20120514, end: 20120516
  6. ASENAPINE (ASENAPINE /05706901/) [Suspect]
     Indication: SCHIZOPHRENIA
     Dosage: ;BID;SL, 10 MG;BID;SL
     Route: 060
     Dates: start: 20120517, end: 20120617
  7. TRIHEXYPHENIDYL HCL [Concomitant]

REACTIONS (6)
  - RESTLESSNESS [None]
  - LACERATION [None]
  - REFUSAL OF TREATMENT BY PATIENT [None]
  - AFFECTIVE DISORDER [None]
  - SCHIZOPHRENIA [None]
  - POOR QUALITY SLEEP [None]
